FAERS Safety Report 13115072 (Version 1)
Quarter: 2017Q1

REPORT INFORMATION
  Report Type: Spontaneous
  Country: US (occurrence: US)
  Receive Date: 20170113
  Receipt Date: 20170113
  Transmission Date: 20170428
  Serious: Yes (Other)
  Sender: FDA-Public Use
  Company Number: PHHY2017US001517

PATIENT
  Age: 61 Year
  Sex: Female

DRUGS (1)
  1. THIAMAZOLE [Suspect]
     Active Substance: METHIMAZOLE
     Indication: BASEDOW^S DISEASE
     Dosage: 20 MG, QD
     Route: 065

REACTIONS (2)
  - Pulmonary vasculitis [Recovered/Resolved]
  - Antineutrophil cytoplasmic antibody [Recovered/Resolved]
